FAERS Safety Report 9851362 (Version 4)
Quarter: 2014Q1

REPORT INFORMATION
  Report Type: Report from Study
  Country: ES (occurrence: ES)
  Receive Date: 20140129
  Receipt Date: 20140314
  Transmission Date: 20141002
  Serious: Yes (Hospitalization)
  Sender: FDA-Public Use
  Company Number: ES-ROCHE-1338896

PATIENT
  Age: 84 Year
  Sex: Female
  Weight: 61 kg

DRUGS (13)
  1. RANIBIZUMAB [Suspect]
     Indication: RETINAL VEIN OCCLUSION
     Dosage: MONTHLY FROM DAY 1 THROUGH MONTH 5, AND AS NEEDED FROM MONTH 6
     Route: 050
     Dates: start: 20130117
  2. RANIBIZUMAB [Suspect]
     Route: 050
     Dates: start: 20131003, end: 20131003
  3. RANIBIZUMAB [Suspect]
     Route: 050
     Dates: start: 20130801
  4. RANIBIZUMAB [Suspect]
     Route: 050
     Dates: start: 20130709
  5. RANIBIZUMAB [Suspect]
     Route: 050
     Dates: start: 20130605
  6. RANIBIZUMAB [Suspect]
     Route: 050
     Dates: start: 20130508
  7. RANIBIZUMAB [Suspect]
     Route: 050
     Dates: start: 20130418
  8. RANIBIZUMAB [Suspect]
     Route: 050
     Dates: start: 20130313
  9. ENALAPRIL [Concomitant]
     Indication: HYPERTENSION
     Dosage: DAILY
     Route: 048
     Dates: start: 2003, end: 20131222
  10. ENALAPRIL [Concomitant]
     Route: 065
     Dates: start: 20131222
  11. SIMVASTATIN [Concomitant]
     Indication: HYPERCHOLESTEROLAEMIA
     Dosage: DAILY
     Route: 048
     Dates: start: 2003, end: 20131222
  12. SIMVASTATIN [Concomitant]
     Route: 065
     Dates: start: 20131222
  13. ADIRO [Concomitant]

REACTIONS (1)
  - Myocardial infarction [Recovered/Resolved with Sequelae]
